FAERS Safety Report 10456572 (Version 3)
Quarter: 2014Q4

REPORT INFORMATION
  Report Type: Report from Study
  Country: US (occurrence: US)
  Receive Date: 20140916
  Receipt Date: 20141224
  Transmission Date: 20150528
  Serious: Yes (Other)
  Sender: FDA-Public Use
  Company Number: US-SA-2014SA089244

PATIENT
  Age: 55 Year
  Sex: Male

DRUGS (2)
  1. KYNAMRO [Suspect]
     Active Substance: MIPOMERSEN SODIUM
     Indication: TYPE IIA HYPERLIPIDAEMIA
     Route: 058
     Dates: start: 20140627
  2. LIDOCAINE. [Concomitant]
     Active Substance: LIDOCAINE

REACTIONS (4)
  - Hepatic enzyme increased [Not Recovered/Not Resolved]
  - Injection site pain [Not Recovered/Not Resolved]
  - Injection site warmth [Unknown]
  - Medication error [Unknown]

NARRATIVE: CASE EVENT DATE: 2014
